FAERS Safety Report 9345296 (Version 1)
Quarter: 2013Q2

REPORT INFORMATION
  Report Type: Spontaneous
  Country: BR (occurrence: BR)
  Receive Date: 20130613
  Receipt Date: 20130613
  Transmission Date: 20140414
  Serious: Yes (Hospitalization, Other)
  Sender: FDA-Public Use
  Company Number: BR-AMGEN-BRASP2013041291

PATIENT
  Age: 39 Year
  Sex: Female
  Weight: 88 kg

DRUGS (4)
  1. ENBREL [Suspect]
     Indication: RHEUMATOID ARTHRITIS
     Dosage: 50 MG, 1X/WEEK
     Route: 065
     Dates: end: 201302
  2. METICORTEN [Concomitant]
     Indication: PAIN
     Dosage: UNK
     Dates: start: 1998
  3. TYLENOL                            /00020001/ [Concomitant]
     Indication: PAIN
     Dosage: 750 MG, EVERY 12 HOURS
     Dates: start: 1998
  4. RANITIDINE [Concomitant]
     Indication: GASTRIC DISORDER
     Dosage: UNK
     Dates: start: 1998

REACTIONS (5)
  - Spinal osteoarthritis [Unknown]
  - Bedridden [Recovered/Resolved]
  - Fibromyalgia [Unknown]
  - Benign muscle neoplasm [Unknown]
  - Muscle rigidity [Unknown]
